FAERS Safety Report 5423835-5 (Version None)
Quarter: 2007Q3

REPORT INFORMATION
  Report Type: 
  Country: None (occurrence: None)
  Receive Date: 20070823
  Receipt Date: 20070813
  Transmission Date: 20080115
  Serious: Yes (Hospitalization)
  Sender: FDA-Public Use
  Company Number: US-BRISTOL-MYERS SQUIBB COMPANY-13630272

PATIENT
  Age: 46 Year
  Sex: Female
  Weight: 63 kg

DRUGS (9)
  1. DASATINIB [Suspect]
     Indication: CHRONIC MYELOID LEUKAEMIA
     Route: 048
     Dates: start: 20060306, end: 20070102
  2. ANAGRELIDE HCL [Concomitant]
     Dates: start: 20050316
  3. POTASSIUM CHLORIDE [Concomitant]
     Dates: start: 20050316
  4. ACTIVELLA [Concomitant]
     Dates: start: 20020201
  5. ARANESP [Concomitant]
     Dates: start: 20050722
  6. ALEVE [Concomitant]
     Dates: start: 20050805
  7. NEUPOGEN [Concomitant]
     Dates: start: 20050203
  8. CLOBETASOL PROPIONATE [Concomitant]
     Dates: start: 20051012
  9. MULTI-VITAMIN [Concomitant]
     Dates: start: 20051124

REACTIONS (2)
  - COR PULMONALE [None]
  - PERICARDIAL EFFUSION [None]
